FAERS Safety Report 5524544-4 (Version None)
Quarter: 2007Q4

REPORT INFORMATION
  Report Type: 
  Country: None (occurrence: None)
  Receive Date: 20071123
  Receipt Date: 20071119
  Transmission Date: 20080405
  Serious: Yes (Hospitalization, Other)
  Sender: FDA-Public Use
  Company Number: GB-RANBAXY-2007RR-11289

PATIENT

DRUGS (5)
  1. RISPERIDONE [Suspect]
     Indication: SCHIZOAFFECTIVE DISORDER
     Dosage: 25 MG,1/2 WEEKS
     Route: 030
     Dates: start: 20050708, end: 20050908
  2. RISPERIDONE [Suspect]
     Dosage: 50 MG, 1/2 WEEKS.
     Route: 030
     Dates: end: 20050708
  3. RISPERIDONE 0.5MG FILM-COATED TABLETS [Suspect]
     Indication: SCHIZOAFFECTIVE DISORDER
     Dosage: UNK MG, UNK
     Route: 048
     Dates: end: 20050101
  4. CLOPIXOL [Concomitant]
  5. VALPROIC ACID [Concomitant]

REACTIONS (4)
  - NAUSEA [None]
  - SCHIZOPHRENIA [None]
  - VOMITING [None]
  - WEIGHT INCREASED [None]
